FAERS Safety Report 10252078 (Version 1)
Quarter: 2014Q2

REPORT INFORMATION
  Report Type: Report from Study
  Country: BR (occurrence: BR)
  Receive Date: 20140623
  Receipt Date: 20140623
  Transmission Date: 20141212
  Serious: Yes (Life-Threatening, Hospitalization, Other)
  Sender: FDA-Public Use
  Company Number: PHHY2014BR076055

PATIENT
  Age: 22 Year
  Sex: Female
  Weight: 65 kg

DRUGS (10)
  1. EXJADE [Suspect]
     Indication: SICKLE CELL ANAEMIA
     Dosage: 3 DF, DAILY
     Route: 048
  2. EXJADE [Suspect]
     Dosage: 1 DF, DAILY
     Route: 048
  3. DESFERAL [Suspect]
     Indication: SERUM FERRITIN INCREASED
     Dosage: 1 DF, DAILY
  4. DESFERAL [Suspect]
     Dosage: 3 DF, DAILY
     Route: 048
  5. ACETAMINOPHEN (PARACETAMOL), CODEINE PHOSPHATE [Suspect]
     Dosage: UNK
     Route: 042
  6. MORFINE [Suspect]
     Indication: PAIN
     Dosage: UNK
     Route: 042
  7. CALCIUM [Concomitant]
     Indication: OSTEOPOROSIS
     Dosage: 1 DF, DAILY
     Route: 048
  8. ACETYLSALICYLIC ACID [Concomitant]
     Indication: ANTICOAGULANT THERAPY
     Dosage: 1 DF, DAILY
     Route: 048
  9. FOLIC ACID [Concomitant]
     Indication: BONE MARROW DISORDER
     Dosage: 1 DF, DAILY
     Route: 030
  10. DEPO-PROVERA [Concomitant]
     Indication: MENSTRUAL DISORDER
     Dosage: 1 DF, EVERY 60 DAYS
     Route: 030

REACTIONS (22)
  - Cerebrovascular accident [Recovered/Resolved]
  - Respiratory arrest [Recovered/Resolved]
  - Cardiac disorder [Recovered/Resolved]
  - Coma [Recovered/Resolved]
  - Bronchospasm [Unknown]
  - Pain in extremity [Recovered/Resolved]
  - Sickle cell anaemia [Recovering/Resolving]
  - Haemolysis [Not Recovered/Not Resolved]
  - Haemoglobin decreased [Unknown]
  - Pain [Unknown]
  - Influenza [Recovered/Resolved]
  - Abdominal pain upper [Recovered/Resolved]
  - Nasopharyngitis [Recovered/Resolved]
  - Infection [Recovered/Resolved]
  - Haemorrhage [Not Recovered/Not Resolved]
  - Fatigue [Not Recovered/Not Resolved]
  - Malaise [Unknown]
  - Hypersensitivity [Unknown]
  - Rash [Unknown]
  - Pallor [Not Recovered/Not Resolved]
  - Serum ferritin increased [Not Recovered/Not Resolved]
  - White blood cell count decreased [Unknown]
